FAERS Safety Report 7075094-8 (Version None)
Quarter: 2010Q4

REPORT INFORMATION
  Report Type: 
  Country: None (occurrence: None)
  Receive Date: 20101029
  Receipt Date: 20100419
  Transmission Date: 20110411
  Serious: Yes (Other)
  Sender: FDA-Public Use
  Company Number: US-WYE-H14679510

PATIENT
  Age: 49 Year
  Sex: Male

DRUGS (5)
  1. ALAVERT [Suspect]
     Indication: HYPERSENSITIVITY
     Route: 048
     Dates: start: 20100401, end: 20100415
  2. ASCORBIC ACID [Concomitant]
     Indication: NUTRITIONAL SUPPORT
     Dosage: UNKNOWN
     Route: 048
  3. ACETYLSALICYLIC ACID SRT [Concomitant]
     Dosage: UNKNOWN
     Route: 048
  4. VITAMIN D [Concomitant]
     Indication: NUTRITIONAL SUPPORT
     Dosage: UNKNOWN
     Route: 048
  5. FISH OIL [Concomitant]
     Indication: NUTRITIONAL SUPPORT
     Dosage: UNKNOWN
     Route: 048

REACTIONS (1)
  - BLOOD PRESSURE INCREASED [None]
